FAERS Safety Report 18965547 (Version 1)
Quarter: 2021Q1

REPORT INFORMATION
  Report Type: Other
  Country: GB (occurrence: GB)
  Receive Date: 20210304
  Receipt Date: 20210304
  Transmission Date: 20210420
  Serious: Yes (Other)
  Sender: FDA-Public Use
  Company Number: GB-ROCHE-2773400

PATIENT
  Sex: Male

DRUGS (1)
  1. ESBRIET [Suspect]
     Active Substance: PIRFENIDONE
     Indication: IDIOPATHIC PULMONARY FIBROSIS
     Dosage: 1 TABLET TO BE TAKEN 3 TIMES A DAY ;ONGOING: YES
     Route: 048
     Dates: start: 201801

REACTIONS (1)
  - Toe amputation [Unknown]

NARRATIVE: CASE EVENT DATE: 20210217
